FAERS Safety Report 19794856 (Version 2)
Quarter: 2021Q3

REPORT INFORMATION
  Report Type: Spontaneous
  Country: US (occurrence: US)
  Receive Date: 20210906
  Receipt Date: 20210920
  Transmission Date: 20211014
  Serious: Yes (Other)
  Sender: FDA-Public Use
  Company Number: US-TEVA-2021-US-1949123

PATIENT
  Sex: Male
  Weight: 97.07 kg

DRUGS (2)
  1. IBUPROFEN. [Suspect]
     Active Substance: IBUPROFEN
     Route: 065
  2. PENICILLIN [Suspect]
     Active Substance: PENICILLIN
     Dosage: START DATE: 2005?2006, STOP DATE: ONLY TAKEN FOR A WEEK
     Route: 065

REACTIONS (5)
  - Ephelides [Unknown]
  - Pigmentation disorder [Not Recovered/Not Resolved]
  - Urticaria [Recovered/Resolved]
  - Angioedema [Unknown]
  - Pharyngeal swelling [Unknown]
